FAERS Safety Report 16596806 (Version 1)
Quarter: 2019Q3

REPORT INFORMATION
  Report Type: Spontaneous
  Country: IT (occurrence: IT)
  Receive Date: 20190719
  Receipt Date: 20190719
  Transmission Date: 20191004
  Serious: Yes (Other)
  Sender: FDA-Public Use
  Company Number: IT-UCBSA-2019026574

PATIENT
  Age: 3 Month
  Sex: Male

DRUGS (1)
  1. CIMZIA [Suspect]
     Active Substance: CERTOLIZUMAB PEGOL
     Indication: ARTHRITIS ENTEROPATHIC
     Dosage: 200 MILLIGRAM / 1 CYCLICAL
     Route: 058
     Dates: start: 20160101, end: 20170501

REACTIONS (2)
  - Skin ulcer [Recovered/Resolved]
  - Off label use [Unknown]

NARRATIVE: CASE EVENT DATE: 20160101
